FAERS Safety Report 21158344 (Version 1)
Quarter: 2022Q3

REPORT INFORMATION
  Report Type: Spontaneous
  Country: CN (occurrence: None)
  Receive Date: 20220801
  Receipt Date: 20220801
  Transmission Date: 20221026
  Serious: Yes (Other)
  Sender: FDA-Public Use
  Company Number: CN-ROCHE-3149774

PATIENT
  Age: 53 Year
  Sex: Male

DRUGS (29)
  1. RITUXIMAB [Suspect]
     Active Substance: RITUXIMAB
     Indication: Diffuse large B-cell lymphoma
     Dosage: R-CDOP-R
     Route: 042
     Dates: start: 201912, end: 202002
  2. RITUXIMAB [Suspect]
     Active Substance: RITUXIMAB
     Dosage: R-CDOP-R
     Route: 042
     Dates: start: 20200318, end: 20200417
  3. RITUXIMAB [Suspect]
     Active Substance: RITUXIMAB
     Dosage: R, 600MG PER DAY
     Route: 042
     Dates: start: 20200523
  4. GAZYVA [Suspect]
     Active Substance: OBINUTUZUMAB
     Indication: Diffuse large B-cell lymphoma
     Dosage: OBINUTUZUMAB+ICE+ORELABRUTINIB
     Route: 042
     Dates: start: 20210908
  5. GAZYVA [Suspect]
     Active Substance: OBINUTUZUMAB
     Dosage: OBINUTUZUMAB+ICE+ORELABRUTINIB
     Route: 042
     Dates: start: 20211009
  6. ORELABRUTINIB [Concomitant]
     Active Substance: ORELABRUTINIB
     Indication: Diffuse large B-cell lymphoma
     Dosage: OBINUTUZUMAB+ICE+ORELABRUTINIB
     Dates: start: 20210908
  7. ORELABRUTINIB [Concomitant]
     Active Substance: ORELABRUTINIB
     Dosage: OBINUTUZUMAB+ICE+ORELABRUTINIB
     Dates: start: 20211009
  8. IFOSFAMIDE [Concomitant]
     Active Substance: IFOSFAMIDE
     Indication: Diffuse large B-cell lymphoma
     Dosage: OBINUTUZUMAB+ICE+ORELABRUTINIB
     Dates: start: 20210908
  9. IFOSFAMIDE [Concomitant]
     Active Substance: IFOSFAMIDE
     Dosage: OBINUTUZUMAB+ICE+ORELABRUTINIB
     Dates: start: 20211009
  10. ETOPOSIDE [Concomitant]
     Active Substance: ETOPOSIDE
     Indication: Diffuse large B-cell lymphoma
     Dosage: OBINUTUZUMAB+ICE+ORELABRUTINIB
     Dates: start: 20210908
  11. ETOPOSIDE [Concomitant]
     Active Substance: ETOPOSIDE
     Dosage: OBINUTUZUMAB+ICE+ORELABRUTINIB
     Dates: start: 20211009
  12. CISPLATIN [Concomitant]
     Active Substance: CISPLATIN
     Indication: Diffuse large B-cell lymphoma
     Dosage: OBINUTUZUMAB+ICE+ORELABRUTINIB
     Dates: start: 20210908
  13. CISPLATIN [Concomitant]
     Active Substance: CISPLATIN
     Dosage: OBINUTUZUMAB+ICE+ORELABRUTINIB
     Dates: start: 20211009
  14. VINCRISTINE [Concomitant]
     Active Substance: VINCRISTINE
     Indication: Diffuse large B-cell lymphoma
     Dosage: R-CDOP-R
     Dates: start: 201912, end: 202002
  15. VINCRISTINE [Concomitant]
     Active Substance: VINCRISTINE
     Dosage: R-CDOP-R
     Dates: start: 20200318, end: 20200417
  16. DEXAMETHASONE [Concomitant]
     Active Substance: DEXAMETHASONE
     Indication: Diffuse large B-cell lymphoma
     Dosage: R-CDOP-R
     Dates: start: 201912, end: 202002
  17. DEXAMETHASONE [Concomitant]
     Active Substance: DEXAMETHASONE
     Dosage: R-CDOP-R
     Dates: start: 20200318, end: 20200417
  18. DOXORUBICIN [Concomitant]
     Active Substance: DOXORUBICIN
     Indication: Diffuse large B-cell lymphoma
     Dosage: R-CDOP-R
     Dates: start: 201912, end: 202002
  19. DOXORUBICIN [Concomitant]
     Active Substance: DOXORUBICIN
     Dosage: R-CDOP-R
     Dates: start: 20200318, end: 20200417
  20. LENALIDOMIDE [Concomitant]
     Active Substance: LENALIDOMIDE
     Indication: Diffuse large B-cell lymphoma
     Dosage: R-CDOP-R
     Dates: start: 201912, end: 202002
  21. LENALIDOMIDE [Concomitant]
     Active Substance: LENALIDOMIDE
     Dosage: R-CDOP-R
     Dates: start: 20200318, end: 20200417
  22. FLUDARABINE [Concomitant]
     Active Substance: FLUDARABINE PHOSPHATE
     Indication: Diffuse large B-cell lymphoma
     Dates: start: 20211126
  23. CYCLOPHOSPHAMIDE [Concomitant]
     Active Substance: CYCLOPHOSPHAMIDE
     Indication: Diffuse large B-cell lymphoma
     Dosage: R-CDOP-R
     Dates: start: 201912, end: 202002
  24. CYCLOPHOSPHAMIDE [Concomitant]
     Active Substance: CYCLOPHOSPHAMIDE
     Dosage: R-CDOP-R
     Dates: start: 20200318, end: 20200417
  25. CYCLOPHOSPHAMIDE [Concomitant]
     Active Substance: CYCLOPHOSPHAMIDE
     Dates: start: 20211126
  26. OLVEREMBATINIB [Concomitant]
     Active Substance: OLVEREMBATINIB
     Indication: Diffuse large B-cell lymphoma
     Dates: start: 20220704
  27. LOBAPLATIN [Concomitant]
     Active Substance: LOBAPLATIN
     Indication: Diffuse large B-cell lymphoma
     Dates: start: 20220705
  28. CYTARABINE [Concomitant]
     Active Substance: CYTARABINE
     Indication: Diffuse large B-cell lymphoma
     Dates: start: 20220706
  29. INOTUZUMAB OZOGAMICIN [Concomitant]
     Active Substance: INOTUZUMAB OZOGAMICIN
     Indication: Diffuse large B-cell lymphoma
     Dates: start: 20220707

REACTIONS (4)
  - Pyrexia [Recovered/Resolved]
  - Full blood count decreased [Recovering/Resolving]
  - Myelosuppression [Unknown]
  - Off label use [Unknown]
